FAERS Safety Report 4825882-0 (Version None)
Quarter: 2005Q4

REPORT INFORMATION
  Report Type: 
  Country: None (occurrence: None)
  Receive Date: 20051111
  Receipt Date: 20050621
  Transmission Date: 20060501
  Serious: Yes (Other)
  Sender: FDA-Public Use
  Company Number: PHEH2005US07058

PATIENT
  Age: 66 Year
  Sex: Female

DRUGS (3)
  1. ZOMETA [Suspect]
     Dosage: 4 MG EVERY 3-4 WEEKS
     Dates: end: 20050608
  2. HERCEPTIN [Concomitant]
  3. XELODA [Concomitant]
     Dosage: ^INTERMITTENT^
     Dates: end: 20050929

REACTIONS (7)
  - BONE DISORDER [None]
  - DENTAL TREATMENT [None]
  - ENANTHEMA [None]
  - IMPAIRED HEALING [None]
  - INFLAMMATION [None]
  - OSTEONECROSIS [None]
  - PAIN [None]
